FAERS Safety Report 7557302-X (Version None)
Quarter: 2011Q2

REPORT INFORMATION
  Report Type: 
  Country: None (occurrence: None)
  Receive Date: 20110620
  Receipt Date: 20080905
  Transmission Date: 20111010
  Serious: Yes (Death)
  Sender: FDA-Public Use
  Company Number: PHHY2008DE37523

PATIENT
  Sex: Male
  Weight: 76 kg

DRUGS (3)
  1. SANDOSTATIN LAR [Suspect]
     Indication: NEUROENDOCRINE TUMOUR
     Dosage: 20 MG, UNK
     Route: 030
     Dates: start: 20080101
  2. THOMAPYRIN [Concomitant]
     Dosage: UNK
     Dates: start: 20090111
  3. SANDOSTATIN LAR [Suspect]
     Dosage: 30 MG, UNK
     Route: 030

REACTIONS (1)
  - DEATH [None]
